FAERS Safety Report 22093780 (Version 1)
Quarter: 2023Q1

REPORT INFORMATION
  Report Type: Spontaneous
  Country: US (occurrence: US)
  Receive Date: 20230314
  Receipt Date: 20230314
  Transmission Date: 20230417
  Serious: Yes (Other)
  Sender: FDA-Public Use
  Company Number: US-BAYER-2023A029335

PATIENT
  Age: 50 Year
  Sex: Male

DRUGS (2)
  1. ASPIRIN [Interacting]
     Active Substance: ASPIRIN
  2. TICAGRELOR [Interacting]
     Active Substance: TICAGRELOR

REACTIONS (4)
  - Choroidal haemorrhage [None]
  - Vitreous haemorrhage [None]
  - Intraocular pressure increased [None]
  - Labelled drug-drug interaction medication error [None]
